FAERS Safety Report 6444098-8 (Version None)
Quarter: 2009Q4

REPORT INFORMATION
  Report Type: 
  Country: None (occurrence: None)
  Receive Date: 20091118
  Receipt Date: 20091105
  Transmission Date: 20100525
  Serious: Yes (Life-Threatening, Hospitalization, Other)
  Sender: FDA-Public Use
  Company Number: US-RANBAXY-2009US-29188

PATIENT

DRUGS (4)
  1. DIAZEPAM [Suspect]
     Indication: DRUG USE FOR UNKNOWN INDICATION
     Dosage: 50 X 50 MG
     Route: 065
  2. TRAMADOL [Suspect]
     Indication: DRUG USE FOR UNKNOWN INDICATION
     Dosage: 15 X 200 MG
     Route: 065
  3. MORPHINE [Suspect]
     Indication: DRUG USE FOR UNKNOWN INDICATION
     Dosage: 20 X 30 MG
     Route: 065
  4. VERAPAMIL [Suspect]
     Indication: DRUG USE FOR UNKNOWN INDICATION
     Route: 065

REACTIONS (12)
  - ASTHENIA [None]
  - ATAXIA [None]
  - CARDIAC INDEX INCREASED [None]
  - DISORIENTATION [None]
  - DRUG TOXICITY [None]
  - DYSARTHRIA [None]
  - HAEMODYNAMIC INSTABILITY [None]
  - HYPOTENSION [None]
  - INTENTIONAL OVERDOSE [None]
  - NODAL RHYTHM [None]
  - SOMNOLENCE [None]
  - VASCULAR RESISTANCE SYSTEMIC DECREASED [None]
